FAERS Safety Report 20652294 (Version 1)
Quarter: 2022Q1

REPORT INFORMATION
  Report Type: Spontaneous
  Country: FI (occurrence: FI)
  Receive Date: 20220330
  Receipt Date: 20220330
  Transmission Date: 20220423
  Serious: Yes (Disabling, Other)
  Sender: FDA-Public Use
  Company Number: None

PATIENT
  Age: 72 Year
  Sex: Female

DRUGS (4)
  1. ELIQUIS [Suspect]
     Active Substance: APIXABAN
     Indication: Cerebrovascular accident prophylaxis
     Dosage: 10 MG DAILY (FREQUENCY NOT REPORTED)
     Route: 065
     Dates: start: 2019, end: 20220221
  2. BISOPROLOL [Concomitant]
     Active Substance: BISOPROLOL
     Indication: Hypertension
     Dosage: 10 MG DAILY
     Route: 048
  3. ALVESCO [Concomitant]
     Active Substance: CICLESONIDE
     Indication: Hypersensitivity
     Dosage: AS NECESSARY
  4. EBASTINE [Concomitant]
     Active Substance: EBASTINE
     Indication: Hypersensitivity
     Dosage: AS NECESSARY
     Route: 048

REACTIONS (3)
  - Paraplegia [Recovered/Resolved with Sequelae]
  - Spinal cord injury thoracic [Recovered/Resolved with Sequelae]
  - Spinal epidural haematoma [Recovered/Resolved with Sequelae]

NARRATIVE: CASE EVENT DATE: 20220221
